FAERS Safety Report 4448289-7 (Version None)
Quarter: 2004Q3

REPORT INFORMATION
  Report Type: 
  Country: None (occurrence: None)
  Receive Date: 20040910
  Receipt Date: 20040907
  Transmission Date: 20050211
  Serious: Yes (Death)
  Sender: FDA-Public Use
  Company Number: 04-04-0553

PATIENT
  Age: 47 Year
  Sex: Female

DRUGS (1)
  1. CLOZAPINE [Suspect]
     Dosage: 450-600MG QD ORAL
     Route: 048
     Dates: start: 20020501, end: 20040301

REACTIONS (1)
  - CARDIOVASCULAR DISORDER [None]
